FAERS Safety Report 4280535-5 (Version None)
Quarter: 2004Q1

REPORT INFORMATION
  Report Type: 
  Country: None (occurrence: None)
  Receive Date: 20040127
  Receipt Date: 20040115
  Transmission Date: 20041129
  Serious: Yes (Hospitalization)
  Sender: FDA-Public Use
  Company Number: 200303743

PATIENT
  Age: 58 Year
  Sex: Female

DRUGS (10)
  1. IMODIUM [Suspect]
     Indication: DIARRHOEA
     Dosage: 12 MG DAILY PO
     Route: 048
     Dates: start: 20030709, end: 20030717
  2. QUESTRAN [Suspect]
     Dosage: 4 MG QID
  3. FILINSYRE [Concomitant]
  4. FUROSEMIDE [Concomitant]
  5. POTASSIUM CHLORIDE [Concomitant]
  6. NITRAZEPAM [Concomitant]
  7. ACETAMINOPHEN [Concomitant]
  8. SPIRIX [Concomitant]
  9. IRON C [Concomitant]
  10. PROCTOSEDYL [Concomitant]

REACTIONS (6)
  - ABDOMINAL PAIN [None]
  - CONFUSIONAL STATE [None]
  - DIARRHOEA [None]
  - MYDRIASIS [None]
  - PUPILLARY LIGHT REFLEX TESTS ABNORMAL [None]
  - SOMNOLENCE [None]
